FAERS Safety Report 6814021-2 (Version None)
Quarter: 2010Q3

REPORT INFORMATION
  Report Type: 
  Country: None (occurrence: None)
  Receive Date: 20100702
  Receipt Date: 20100621
  Transmission Date: 20110219
  Serious: Yes (Hospitalization)
  Sender: FDA-Public Use
  Company Number: PHHO2010DE09642

PATIENT
  Sex: Female
  Weight: 97 kg

DRUGS (4)
  1. MYFORTIC [Suspect]
     Indication: RENAL TRANSPLANT
     Dosage: 720 UNK, BID
     Dates: start: 20091115
  2. SIMULECT [Suspect]
     Indication: RENAL TRANSPLANT
     Dosage: 20 UNK, QD
     Route: 042
     Dates: start: 20091115, end: 20091118
  3. SANDIMMUNE [Suspect]
     Dosage: 100 UNK, BID
     Dates: start: 20091117
  4. NO TREATMENT RECEIVED NOMED [Suspect]

REACTIONS (3)
  - BLOOD GLUCOSE INCREASED [None]
  - DIABETES MELLITUS INADEQUATE CONTROL [None]
  - GLYCOSYLATED HAEMOGLOBIN INCREASED [None]
